FAERS Safety Report 9317146 (Version 1)
Quarter: 2013Q2

REPORT INFORMATION
  Report Type: Spontaneous
  Country: US (occurrence: None)
  Receive Date: 20130528
  Receipt Date: 20130528
  Transmission Date: 20140414
  Serious: Yes (Other)
  Sender: FDA-Public Use
  Company Number: None

PATIENT
  Sex: Female
  Weight: 53.98 kg

DRUGS (2)
  1. METOPROLOL [Suspect]
     Indication: HYPERTENSION
     Dosage: 1-A-DAY
  2. CARVEDILOL [Suspect]
     Indication: HYPERTENSION

REACTIONS (3)
  - Hallucination [None]
  - Tremor [None]
  - Hyperhidrosis [None]
